FAERS Safety Report 6127442-0 (Version None)
Quarter: 2009Q1

REPORT INFORMATION
  Report Type: 
  Country: None (occurrence: None)
  Receive Date: 20090319
  Receipt Date: 20090305
  Transmission Date: 20090719
  Serious: Yes (Hospitalization)
  Sender: FDA-Public Use
  Company Number: 02100-JPN-06-0395

PATIENT
  Age: 62 Year
  Sex: Male

DRUGS (5)
  1. PLAVIX [Suspect]
     Indication: CEREBRAL INFARCTION
     Dosage: 75 MG, DAILY DOSE ORAL
     Route: 048
     Dates: start: 20060523, end: 20061212
  2. ASPIRIN [Concomitant]
  3. IBESARTAN (IBESARTAN) [Concomitant]
  4. CILNIDIPINE (CILNIDIPINE) [Concomitant]
  5. CHOLINE ALFOSCERATE (CHOLINE ALFOSCERATE) [Concomitant]

REACTIONS (2)
  - ROAD TRAFFIC ACCIDENT [None]
  - SKIN LACERATION [None]
